FAERS Safety Report 23083514 (Version 1)
Quarter: 2023Q4

REPORT INFORMATION
  Report Type: Spontaneous
  Country: ES (occurrence: ES)
  Receive Date: 20231019
  Receipt Date: 20231019
  Transmission Date: 20240110
  Serious: Yes (Other)
  Sender: FDA-Public Use
  Company Number: ES-MYLANLABS-2023M1108864

PATIENT
  Sex: Male

DRUGS (3)
  1. SUNITINIB [Suspect]
     Active Substance: SUNITINIB
     Indication: Extraskeletal myxoid chondrosarcoma
     Dosage: UNK
     Route: 065
  2. PAZOPANIB [Suspect]
     Active Substance: PAZOPANIB
     Indication: Extraskeletal myxoid chondrosarcoma
     Dosage: 800 MILLIGRAM, QD
     Route: 065
     Dates: start: 2019
  3. NIVOLUMAB [Suspect]
     Active Substance: NIVOLUMAB
     Indication: Extraskeletal myxoid chondrosarcoma
     Dosage: UNK
     Route: 065

REACTIONS (2)
  - Drug ineffective [Unknown]
  - Disease progression [Unknown]
